FAERS Safety Report 11691450 (Version 2)
Quarter: 2015Q4

REPORT INFORMATION
  Report Type: Spontaneous
  Country: FR (occurrence: FR)
  Receive Date: 20151102
  Receipt Date: 20151113
  Transmission Date: 20160304
  Serious: Yes (Other)
  Sender: FDA-Public Use
  Company Number: ALCN2015FR006726

PATIENT
  Age: 77 Year
  Sex: Female

DRUGS (13)
  1. DEXAMETHASONE. [Suspect]
     Active Substance: DEXAMETHASONE
     Indication: VITRITIS
  2. VANCOMYCIN [Concomitant]
     Active Substance: VANCOMYCIN
     Indication: ANTERIOR CHAMBER INFLAMMATION
     Dosage: 1 DF, ONCE/SINGLE
     Route: 031
  3. ATROPINE UNIT DOSE [Suspect]
     Active Substance: ATROPINE
     Indication: VITRITIS
  4. TOBRAMYCIN. [Suspect]
     Active Substance: TOBRAMYCIN
     Indication: ANTERIOR CHAMBER INFLAMMATION
     Dosage: UNK
     Route: 047
  5. VANCOMYCIN [Concomitant]
     Active Substance: VANCOMYCIN
     Indication: VITRITIS
  6. RIMEXOLONE [Suspect]
     Active Substance: RIMEXOLONE
     Indication: ANTERIOR CHAMBER INFLAMMATION
     Dosage: 1 GTT, TID
     Route: 047
  7. DEXAMETHASONE. [Suspect]
     Active Substance: DEXAMETHASONE
     Indication: ANTERIOR CHAMBER INFLAMMATION
     Dosage: UNK
     Route: 047
  8. BETAMETHASONE. [Suspect]
     Active Substance: BETAMETHASONE
     Indication: ANTERIOR CHAMBER INFLAMMATION
     Dosage: 1 DF, ONCE/SINGLE
     Route: 057
  9. METHOTREXATE [Concomitant]
     Active Substance: METHOTREXATE
     Indication: POLYARTHRITIS
     Dosage: UNK
     Route: 048
  10. CEFTAZIDIME. [Concomitant]
     Active Substance: CEFTAZIDIME
     Indication: ANTERIOR CHAMBER INFLAMMATION
     Dosage: 1 DF, ONCE/SINGLE
     Route: 031
  11. CEFTAZIDIME. [Concomitant]
     Active Substance: CEFTAZIDIME
     Indication: VITRITIS
  12. TOBRAMYCIN. [Suspect]
     Active Substance: TOBRAMYCIN
     Indication: VITRITIS
  13. ATROPINE UNIT DOSE [Suspect]
     Active Substance: ATROPINE
     Indication: ANTERIOR CHAMBER INFLAMMATION
     Dosage: UNK
     Route: 047

REACTIONS (7)
  - Anterior chamber flare [Recovered/Resolved]
  - Endophthalmitis [Recovered/Resolved]
  - Disease recurrence [Recovered/Resolved]
  - Vitritis [Recovered/Resolved]
  - Anterior chamber inflammation [Recovered/Resolved]
  - Hypopyon [Recovered/Resolved]
  - Visual acuity reduced [Recovered/Resolved]
